FAERS Safety Report 21198694 (Version 1)
Quarter: 2022Q3

REPORT INFORMATION
  Report Type: Spontaneous
  Country: US (occurrence: US)
  Receive Date: 20220811
  Receipt Date: 20220811
  Transmission Date: 20221027
  Serious: Yes (Other)
  Sender: FDA-Public Use
  Company Number: US-EDENBRIDGE PHARMACEUTICALS, LLC-US-2022EDE000042

PATIENT
  Age: 53 Year
  Sex: Male

DRUGS (2)
  1. ALBENDAZOLE [Suspect]
     Active Substance: ALBENDAZOLE
     Indication: Abdominal discomfort
     Dosage: UNK (A DOSE)
     Route: 065
  2. ALBENDAZOLE [Suspect]
     Active Substance: ALBENDAZOLE
     Dosage: 113000 MG
     Route: 065

REACTIONS (10)
  - Syncope [Unknown]
  - White blood cell count decreased [Recovering/Resolving]
  - Tachycardia [Unknown]
  - Haemoglobin decreased [Recovering/Resolving]
  - Platelet count decreased [Recovering/Resolving]
  - Pyrexia [Unknown]
  - Alopecia [Recovering/Resolving]
  - Skin disorder [Recovering/Resolving]
  - Toxicity to various agents [Unknown]
  - Overdose [Unknown]
